FAERS Safety Report 8293298-3 (Version None)
Quarter: 2012Q2

REPORT INFORMATION
  Report Type: 
  Country: None (occurrence: None)
  Receive Date: 20120417
  Receipt Date: 20111010
  Transmission Date: 20120825
  Serious: No
  Sender: FDA-Public Use
  Company Number: US-ASTRAZENECA-2011SE14440

PATIENT
  Age: 30 Year
  Sex: Male

DRUGS (3)
  1. PRILOSEC [Suspect]
     Indication: DYSPEPSIA
     Route: 048
  2. ZANTAC [Concomitant]
  3. NEXIUM [Suspect]
     Indication: DYSPEPSIA
     Route: 048

REACTIONS (3)
  - DRUG INEFFECTIVE [None]
  - DYSPEPSIA [None]
  - WRONG DRUG ADMINISTERED [None]
